FAERS Safety Report 7092963-3 (Version None)
Quarter: 2010Q4

REPORT INFORMATION
  Report Type: 
  Country: None (occurrence: None)
  Receive Date: 20101110
  Receipt Date: 20101028
  Transmission Date: 20110411
  Serious: No
  Sender: FDA-Public Use
  Company Number: PHHY2010JP66100

PATIENT

DRUGS (1)
  1. ZOMETA [Suspect]
     Dosage: 4 MG
     Route: 041
     Dates: start: 20100928

REACTIONS (1)
  - INFUSION SITE EXTRAVASATION [None]
